FAERS Safety Report 16606349 (Version 2)
Quarter: 2019Q3

REPORT INFORMATION
  Report Type: Report from Study
  Country: None (occurrence: TR)
  Receive Date: 20190721
  Receipt Date: 20190826
  Transmission Date: 20191004
  Serious: Yes (Hospitalization)
  Sender: FDA-Public Use
  Company Number: TR-ABBVIE-19K-161-2860338-00

PATIENT
  Sex: Female
  Weight: 50 kg

DRUGS (1)
  1. DUODOPA [Suspect]
     Active Substance: CARBIDOPA\LEVODOPA
     Indication: PARKINSON^S DISEASE
     Dosage: MORNING DOSE (ML): 4.50 CONTINUOUS DOSE (ML): 1.90 EXTRA DOSE (ML): 0.50
     Route: 050
     Dates: start: 20150114

REACTIONS (3)
  - Dysphagia [Not Recovered/Not Resolved]
  - Aspiration [Recovered/Resolved]
  - Lung infection [Recovered/Resolved]
